FAERS Safety Report 25032287 (Version 1)
Quarter: 2025Q1

REPORT INFORMATION
  Report Type: Spontaneous
  Country: KR (occurrence: KR)
  Receive Date: 20250303
  Receipt Date: 20250303
  Transmission Date: 20250408
  Serious: Yes (Other)
  Sender: BOEHRINGER INGELHEIM
  Company Number: KR-Komodo Health-a23aa0000063bSbAAI

PATIENT
  Age: 83 Year
  Sex: Male

DRUGS (1)
  1. OLODATEROL\TIOTROPIUM [Suspect]
     Active Substance: OLODATEROL\TIOTROPIUM
     Indication: Product used for unknown indication

REACTIONS (4)
  - Retinal vein occlusion [Unknown]
  - Dizziness [Unknown]
  - Vision blurred [Unknown]
  - Dry mouth [Unknown]

NARRATIVE: CASE EVENT DATE: 20240401
